FAERS Safety Report 15561660 (Version 6)
Quarter: 2020Q1

REPORT INFORMATION
  Report Type: Report from Study
  Country: JP (occurrence: JP)
  Receive Date: 20181029
  Receipt Date: 20200130
  Transmission Date: 20200409
  Serious: Yes (Other)
  Sender: FDA-Public Use
  Company Number: JP-GLAXOSMITHKLINE-JP2018JPN174444

PATIENT
  Age: 35 Year
  Sex: Female
  Weight: 60 kg

DRUGS (26)
  1. FLUTIFORM AEROSOL [Suspect]
     Active Substance: FLUTICASONE PROPIONATE\FORMOTEROL FUMARATE
     Indication: ASTHMA PROPHYLAXIS
     Dosage: UNK ?G, UNK
     Route: 055
  2. PREDONINE [Suspect]
     Active Substance: PREDNISOLONE
     Dosage: 3 MG, 1D
     Route: 048
     Dates: start: 20181105, end: 20181202
  3. AMBROXOL HYDROCHLORIDE [Concomitant]
     Active Substance: AMBROXOL HYDROCHLORIDE
     Indication: ASTHMA PROPHYLAXIS
     Dosage: UNK
  4. BELIMUMAB SUBCUTANEOUS [Suspect]
     Active Substance: BELIMUMAB
     Indication: SYSTEMIC LUPUS ERYTHEMATOSUS
     Dosage: 200 MG, WE
     Route: 058
     Dates: start: 20180904, end: 20180912
  5. BELIMUMAB SUBCUTANEOUS [Suspect]
     Active Substance: BELIMUMAB
     Dosage: 200 MG, WE
     Route: 058
     Dates: start: 20190129, end: 20190218
  6. PREDONINE [Suspect]
     Active Substance: PREDNISOLONE
     Dosage: 1 MG, 1D
     Route: 048
     Dates: start: 20190129
  7. ASPARA POTASSIUM [Concomitant]
     Active Substance: POTASSIUM ASPARTATE
     Indication: HYPOKALAEMIA
     Dosage: UNK
  8. LOXONIN TAPE [Concomitant]
     Active Substance: LOXOPROFEN SODIUM DIHYDRATE
     Indication: SYSTEMIC LUPUS ERYTHEMATOSUS
     Dosage: UNK
  9. BELIMUMAB SUBCUTANEOUS [Suspect]
     Active Substance: BELIMUMAB
     Dosage: 200 MG, WE
     Route: 058
     Dates: start: 20181120, end: 20181120
  10. KIPRES [Concomitant]
     Active Substance: MONTELUKAST SODIUM
     Indication: ASTHMA PROPHYLAXIS
     Dosage: UNK
  11. MUCODYNE [Concomitant]
     Active Substance: CARBOCYSTEINE
     Indication: ASTHMA PROPHYLAXIS
     Dosage: UNK
  12. PREDONINE [Suspect]
     Active Substance: PREDNISOLONE
     Indication: SYSTEMIC LUPUS ERYTHEMATOSUS
     Dosage: 10 MG, 1D
     Route: 048
     Dates: start: 20180904, end: 20180929
  13. ALFACALCIDOL [Concomitant]
     Active Substance: ALFACALCIDOL
     Indication: OSTEOPOROSIS PROPHYLAXIS
     Dosage: 1 UNK, UNK
  14. XYZAL [Suspect]
     Active Substance: LEVOCETIRIZINE DIHYDROCHLORIDE
     Indication: ASTHMA PROPHYLAXIS
     Dosage: UNK UNK, 1D
     Route: 048
  15. NEXIUM CAPSULE [Concomitant]
     Indication: GASTROOESOPHAGEAL REFLUX PROPHYLAXIS
     Dosage: UNK
  16. HIRUDOID LOTION [Concomitant]
     Indication: DRY SKIN PROPHYLAXIS
     Dosage: UNK
  17. URSO [Concomitant]
     Active Substance: URSODIOL
     Indication: ANTIVIRAL PROPHYLAXIS
     Dosage: UNK
  18. BELIMUMAB SUBCUTANEOUS [Suspect]
     Active Substance: BELIMUMAB
     Indication: SYSTEMIC LUPUS ERYTHEMATOSUS
     Dosage: 200 MG, WE
     Route: 058
     Dates: start: 20181002, end: 20181106
  19. BELIMUMAB SUBCUTANEOUS [Suspect]
     Active Substance: BELIMUMAB
     Dosage: 200 MG, ONCE IN EVERY 2 WEEKS
     Route: 058
     Dates: start: 20190219, end: 20190521
  20. MEPTIN AIR [Suspect]
     Active Substance: PROCATEROL HYDROCHLORIDE
     Indication: ASTHMA PROPHYLAXIS
     Dosage: UNK ?G, UNK
     Route: 055
  21. PREDONINE [Suspect]
     Active Substance: PREDNISOLONE
     Dosage: 5 MG, 1D
     Route: 048
     Dates: start: 20180930, end: 20181104
  22. VITANEURIN [Concomitant]
     Indication: PROPHYLAXIS
     Dosage: UNK
  23. PREDONINE [Suspect]
     Active Substance: PREDNISOLONE
     Dosage: 2 MG, 1D
     Route: 048
     Dates: start: 20181203, end: 20190128
  24. NEXIUM CAPSULE [Concomitant]
     Indication: PROPHYLAXIS AGAINST GASTROINTESTINAL ULCER
  25. AIMIX COMBINATION TABLET [Concomitant]
     Indication: HYPERTENSION
     Dosage: UNK UNK, 1D
  26. ONETRAM [Concomitant]
     Active Substance: TRAMADOL HYDROCHLORIDE
     Indication: SYSTEMIC LUPUS ERYTHEMATOSUS
     Dosage: UNK

REACTIONS (10)
  - Oesophageal candidiasis [Recovered/Resolved]
  - Viral upper respiratory tract infection [Recovered/Resolved]
  - Exposure during pregnancy [Unknown]
  - Asthma [Recovered/Resolved]
  - Asthma [Recovered/Resolved]
  - Pharyngitis [Recovered/Resolved]
  - Viral upper respiratory tract infection [Recovered/Resolved]
  - Pharyngitis [Recovered/Resolved]
  - Gastrooesophageal reflux disease [Recovering/Resolving]
  - Live birth [Unknown]

NARRATIVE: CASE EVENT DATE: 20180918
